FAERS Safety Report 8936803 (Version 3)
Quarter: 2014Q2

REPORT INFORMATION
  Report Type: Spontaneous
  Country: US (occurrence: US)
  Receive Date: 20121130
  Receipt Date: 20140424
  Transmission Date: 20141212
  Serious: No
  Sender: FDA-Public Use
  Company Number: US-PFIZER INC-2012300637

PATIENT
  Age: 54 Year
  Sex: Female
  Weight: 53.97 kg

DRUGS (3)
  1. LYRICA [Suspect]
     Indication: FIBROMYALGIA
     Dosage: 100 MG, 3X/DAY
     Dates: start: 201211
  2. CELEXA [Concomitant]
     Dosage: 10 MG, UNK
  3. ADVAIR DISKUS [Concomitant]
     Dosage: UNK, (100/50)

REACTIONS (1)
  - Paraesthesia [Not Recovered/Not Resolved]
